FAERS Safety Report 5846829-4 (Version None)
Quarter: 2008Q3

REPORT INFORMATION
  Report Type: 
  Country: None (occurrence: None)
  Receive Date: 20080815
  Receipt Date: 20080805
  Transmission Date: 20090109
  Serious: Yes (Disabling)
  Sender: FDA-Public Use
  Company Number: PHEH2008US06321

PATIENT
  Sex: Female
  Weight: 45.351 kg

DRUGS (4)
  1. RECLAST [Suspect]
     Dosage: 5 MG, UNK
  2. TORADOL [Concomitant]
  3. MEDROL [Concomitant]
  4. PREDNISONE (NGX) [Concomitant]

REACTIONS (3)
  - ARTHRALGIA [None]
  - BODY TEMPERATURE INCREASED [None]
  - JOINT SWELLING [None]
